FAERS Safety Report 9307804 (Version 6)
Quarter: 2013Q3

REPORT INFORMATION
  Report Type: Report from Study
  Country: FI (occurrence: FI)
  Receive Date: 20130524
  Receipt Date: 20130705
  Transmission Date: 20140515
  Serious: Yes (Hospitalization, Other)
  Sender: FDA-Public Use
  Company Number: FI-SANOFI-AVENTIS-2013SA046111

PATIENT
  Age: 74 Year
  Sex: Male
  Weight: 96 kg

DRUGS (9)
  1. CABAZITAXEL [Suspect]
     Indication: PROSTATE CANCER METASTATIC
     Route: 042
     Dates: start: 20130107, end: 20130107
  2. CABAZITAXEL [Suspect]
     Indication: PROSTATE CANCER METASTATIC
     Route: 042
     Dates: start: 20130410, end: 20130410
  3. PREDNISOLONE [Suspect]
     Indication: PROSTATE CANCER METASTATIC
     Route: 048
     Dates: start: 20130107, end: 20130429
  4. XGEVA [Concomitant]
     Route: 058
     Dates: start: 20120704
  5. PANACOD [Concomitant]
     Route: 048
  6. BURANA [Concomitant]
     Route: 048
  7. CALCICHEW-D3 [Concomitant]
     Indication: PROPHYLAXIS
     Route: 048
     Dates: start: 20120606
  8. SIFROL [Concomitant]
     Route: 048
  9. SOMAC [Concomitant]
     Route: 048
     Dates: start: 20121231

REACTIONS (2)
  - Ischaemic stroke [Recovered/Resolved]
  - Infection [Recovered/Resolved]
